FAERS Safety Report 7535834-8 (Version None)
Quarter: 2011Q2

REPORT INFORMATION
  Report Type: 
  Country: None (occurrence: None)
  Receive Date: 20110609
  Receipt Date: 20110121
  Transmission Date: 20111010
  Serious: Yes (Hospitalization, Other)
  Sender: FDA-Public Use
  Company Number: US-BAYER-2011-023355

PATIENT
  Sex: Female
  Weight: 66 kg

DRUGS (10)
  1. ALBUTEROL SULFATE AUTOHALER [Concomitant]
     Dosage: UNK
     Dates: start: 20070215
  2. ADVIL LIQUI-GELS [Concomitant]
  3. CLARITIN [Concomitant]
     Dosage: UNK
     Dates: start: 20020101
  4. ACYCLOVIR [Concomitant]
     Dosage: UNK
     Dates: start: 20051201
  5. MULTI-VITAMINS [Concomitant]
     Dosage: UNK UNK, QD
     Dates: start: 19970101
  6. VALACYCLOVIR [Concomitant]
  7. ADVAIR DISKUS 100/50 [Concomitant]
     Dosage: UNK
     Dates: start: 20070201
  8. YAZ [Suspect]
     Indication: PREMENSTRUAL SYNDROME
     Dosage: 1 DF, QD
     Dates: start: 20061201, end: 20070201
  9. ASCORBIC ACID [Concomitant]
     Dosage: UNK
     Dates: start: 19970101
  10. NASACORT [Concomitant]
     Dosage: UNK
     Dates: start: 20020101

REACTIONS (12)
  - MUSCLE TIGHTNESS [None]
  - PERIPHERAL ISCHAEMIA [None]
  - DYSPNOEA [None]
  - SPIDER VEIN [None]
  - MYALGIA [None]
  - PULMONARY EMBOLISM [None]
  - DEEP VEIN THROMBOSIS [None]
  - INGUINAL HERNIA [None]
  - OEDEMA PERIPHERAL [None]
  - PAIN IN EXTREMITY [None]
  - OEDEMA [None]
  - BACK PAIN [None]
